FAERS Safety Report 14068602 (Version 1)
Quarter: 2017Q4

REPORT INFORMATION
  Report Type: Spontaneous
  Country: US (occurrence: US)
  Receive Date: 20171010
  Receipt Date: 20171010
  Transmission Date: 20180321
  Serious: Yes (Other)
  Sender: FDA-Public Use
  Company Number: None

PATIENT
  Age: 72 Year
  Sex: Male
  Weight: 90 kg

DRUGS (14)
  1. FENOFIBRATE. [Concomitant]
     Active Substance: FENOFIBRATE
  2. FUCOIDAN [Concomitant]
  3. VITAMIN D3 [Concomitant]
     Active Substance: CHOLECALCIFEROL
  4. VITAMIN C [Concomitant]
     Active Substance: ASCORBIC ACID
  5. MAGNESIUM [Concomitant]
     Active Substance: MAGNESIUM
  6. PROVINAL [Concomitant]
  7. METROPOLOL [Concomitant]
     Active Substance: METOPROLOL
  8. PODIAPN [Concomitant]
     Active Substance: DIETARY SUPPLEMENT
  9. SELENIUM [Concomitant]
     Active Substance: SELENIUM
  10. COQ10 [Concomitant]
     Active Substance: UBIDECARENONE
  11. MILK THISTLE [Concomitant]
     Active Substance: DIETARY SUPPLEMENT\HERBALS\MILK THISTLE
  12. ELIQUIS [Suspect]
     Active Substance: APIXABAN
     Indication: ANTICOAGULANT THERAPY
     Route: 048
     Dates: start: 20170102
  13. METFORMIN [Concomitant]
     Active Substance: METFORMIN HYDROCHLORIDE
  14. CRESTOR [Concomitant]
     Active Substance: ROSUVASTATIN CALCIUM

REACTIONS (6)
  - Cerebrovascular accident [None]
  - Feeling abnormal [None]
  - Drug ineffective [None]
  - Visual impairment [None]
  - Dizziness [None]
  - Eye disorder [None]

NARRATIVE: CASE EVENT DATE: 20170905
